FAERS Safety Report 16784823 (Version 1)
Quarter: 2019Q3

REPORT INFORMATION
  Report Type: Spontaneous
  Country: US (occurrence: US)
  Receive Date: 20190909
  Receipt Date: 20190909
  Transmission Date: 20191005
  Serious: Yes (Other)
  Sender: FDA-Public Use
  Company Number: US-ROCHE-2398851

PATIENT
  Age: 72 Year
  Sex: Female
  Weight: 60.38 kg

DRUGS (14)
  1. PERJETA [Suspect]
     Active Substance: PERTUZUMAB
     Indication: HER-2 POSITIVE BREAST CANCER
     Dosage: ONGOING: NO
     Route: 065
     Dates: start: 20190610, end: 20190722
  2. NASALCROM [Concomitant]
     Active Substance: CROMOLYN SODIUM
     Dosage: ONE SPRAY IN EACH NOSTRIL ONCE A DAY ;ONGOING: YES
     Route: 065
     Dates: start: 201807
  3. LEVAQUIN [Concomitant]
     Active Substance: LEVOFLOXACIN
     Route: 065
  4. ZINC. [Concomitant]
     Active Substance: ZINC
     Dosage: TWICE A DAY ;ONGOING: YES
     Route: 048
     Dates: start: 201906
  5. ANASTROZOLE. [Concomitant]
     Active Substance: ANASTROZOLE
     Dosage: IN THE MORNING ;ONGOING: YES
     Route: 048
     Dates: start: 201407
  6. KADCYLA [Suspect]
     Active Substance: ADO-TRASTUZUMAB EMTANSINE
     Indication: HER-2 POSITIVE BREAST CANCER
     Dosage: ONGOING: YES
     Route: 042
     Dates: start: 20190821
  7. SINGULAIR [Concomitant]
     Active Substance: MONTELUKAST SODIUM
     Indication: ASTHMA
     Dosage: AT BEDTIME ;ONGOING: YES
     Route: 048
     Dates: start: 20190801
  8. SYMBICORT [Concomitant]
     Active Substance: BUDESONIDE\FORMOTEROL FUMARATE DIHYDRATE
     Indication: ASTHMA
     Dosage: 80/4.5% 2 PUFFS IN AM AND PM ;ONGOING: YES
     Route: 065
     Dates: start: 201908
  9. RHINOCORT [BUDESONIDE] [Concomitant]
     Dosage: 1 SPRAY EACH NOSTRIL ONCE A DAY ;ONGOING: YES
     Route: 065
     Dates: start: 201807
  10. HERCEPTIN [Suspect]
     Active Substance: TRASTUZUMAB
     Indication: HER-2 POSITIVE BREAST CANCER
     Dosage: ONGOING:NO
     Route: 042
     Dates: start: 20190610, end: 20190722
  11. COZARTAN [Concomitant]
     Indication: HYPERTENSION
     Dosage: ONGOING: YES
     Route: 048
     Dates: start: 2000
  12. ZYRTEC [Concomitant]
     Active Substance: CETIRIZINE HYDROCHLORIDE
     Route: 065
  13. HERCEPTIN [Suspect]
     Active Substance: TRASTUZUMAB
     Dosage: ONGOING:NO
     Route: 042
     Dates: start: 201505, end: 201511
  14. VITAMIN B [Concomitant]
     Active Substance: VITAMIN B
     Dosage: ONGOING: YES
     Route: 048
     Dates: start: 201906

REACTIONS (6)
  - Nail discolouration [Not Recovered/Not Resolved]
  - Breast cancer recurrent [Unknown]
  - Vitamin D deficiency [Not Recovered/Not Resolved]
  - Asthma [Not Recovered/Not Resolved]
  - Body temperature increased [Recovered/Resolved]
  - Neoplasm progression [Unknown]

NARRATIVE: CASE EVENT DATE: 2016
